FAERS Safety Report 23198849 (Version 1)
Quarter: 2023Q4

REPORT INFORMATION
  Report Type: Spontaneous
  Country: BG (occurrence: BG)
  Receive Date: 20231117
  Receipt Date: 20231117
  Transmission Date: 20240109
  Serious: Yes (Other)
  Sender: FDA-Public Use
  Company Number: BG-ELI_LILLY_AND_COMPANY-BE202311004970

PATIENT
  Age: 74 Year
  Sex: Male

DRUGS (4)
  1. PEMETREXED [Suspect]
     Active Substance: PEMETREXED
     Indication: Lung neoplasm malignant
     Dosage: 500 MG/M2, OTHER (EVERY 3 WEEKS)
     Route: 065
  2. KEYTRUDA [Suspect]
     Active Substance: PEMBROLIZUMAB
     Indication: Lung neoplasm malignant
     Dosage: 200 MG, OTHER (EVERY 3 WEEKS)
     Route: 065
  3. CARBOPLATIN [Suspect]
     Active Substance: CARBOPLATIN
     Indication: Lung neoplasm malignant
     Dosage: UNK, OTHER (EVERY 3 WEEKS)
     Route: 065
  4. DENOSUMAB [Suspect]
     Active Substance: DENOSUMAB
     Indication: Lung neoplasm malignant
     Dosage: 120 MG, MONTHLY (1/M)
     Route: 065

REACTIONS (14)
  - N-terminal prohormone brain natriuretic peptide increased [Recovering/Resolving]
  - Bundle branch block right [Unknown]
  - Pneumonitis [Unknown]
  - White blood cell count decreased [Unknown]
  - Platelet count decreased [Unknown]
  - Haemoglobin decreased [Unknown]
  - Atrial flutter [Unknown]
  - Myocardial strain imaging abnormal [Recovering/Resolving]
  - Bone lesion [Unknown]
  - Inflammatory marker increased [Unknown]
  - Osteosclerosis [Unknown]
  - Ejection fraction decreased [Recovering/Resolving]
  - Pyrexia [Unknown]
  - Therapy partial responder [Unknown]
